FAERS Safety Report 16523523 (Version 1)
Quarter: 2019Q3

REPORT INFORMATION
  Report Type: Report from Study
  Country: CN (occurrence: CN)
  Receive Date: 20190703
  Receipt Date: 20190703
  Transmission Date: 20191004
  Serious: Yes (Other)
  Sender: FDA-Public Use
  Company Number: CN-ROCHE-2341135

PATIENT

DRUGS (5)
  1. TRASTUZUMAB. [Suspect]
     Active Substance: TRASTUZUMAB
     Dosage: ON THE 1ST DAY OF THE FOLLOWING CYCLES
     Route: 042
  2. 5-FU [FLUOROURACIL] [Suspect]
     Active Substance: FLUOROURACIL
     Indication: HER-2 POSITIVE GASTRIC CANCER
     Dosage: CONTINUOUS INTRAVENOUS PUMP INJECTION FOR 46 H, D1-21 D WERE ADOPTED AS ONE CYCLE AND TOTALLY 6 CYCL
     Route: 042
  3. TRASTUZUMAB. [Suspect]
     Active Substance: TRASTUZUMAB
     Indication: HER-2 POSITIVE GASTRIC CANCER
     Dosage: ON THE 1ST DAY OF THE FIRST CHEMOTHERAPY CYCLE
     Route: 042
  4. CALCIUM FOLINATE [Suspect]
     Active Substance: LEUCOVORIN CALCIUM
     Indication: HER-2 POSITIVE GASTRIC CANCER
     Dosage: ON DAY 1
     Route: 042
  5. OXALIPLATIN. [Suspect]
     Active Substance: OXALIPLATIN
     Indication: HER-2 POSITIVE GASTRIC CANCER
     Dosage: ON DAY 1
     Route: 042

REACTIONS (3)
  - Cardiotoxicity [Unknown]
  - Hepatotoxicity [Unknown]
  - Bone marrow failure [Unknown]
